FAERS Safety Report 24082603 (Version 1)
Quarter: 2024Q3

REPORT INFORMATION
  Report Type: Spontaneous
  Country: CA (occurrence: CA)
  Receive Date: 20240712
  Receipt Date: 20240712
  Transmission Date: 20241016
  Serious: Yes (Other)
  Sender: REGENERON
  Company Number: CA-BAYER-2024A099240

PATIENT
  Age: 70 Year
  Sex: Male

DRUGS (1)
  1. EYLEA [Suspect]
     Active Substance: AFLIBERCEPT
     Indication: Choroidal neovascularisation
     Dosage: SOLUTION FOR INJECTION , 40 MG/ML

REACTIONS (2)
  - Corneal neovascularisation [Unknown]
  - Drug ineffective [Unknown]
